FAERS Safety Report 10256481 (Version 1)
Quarter: 2014Q2

REPORT INFORMATION
  Report Type: Spontaneous
  Country: US (occurrence: US)
  Receive Date: 20140624
  Receipt Date: 20140624
  Transmission Date: 20141212
  Serious: Yes (Other)
  Sender: FDA-Public Use
  Company Number: US-TAKEDA-2014TUS004999

PATIENT
  Sex: Female

DRUGS (2)
  1. BRINTELLIX [Suspect]
     Indication: PRODUCT USED FOR UNKNOWN INDICATION
     Dosage: 5 MG, QD
     Route: 048
  2. EFFEXOR XR [Concomitant]
     Route: 048

REACTIONS (1)
  - Suicide attempt [Unknown]
